FAERS Safety Report 21687040 (Version 1)
Quarter: 2022Q4

REPORT INFORMATION
  Report Type: Report from Study
  Country: US (occurrence: US)
  Receive Date: 20221206
  Receipt Date: 20221206
  Transmission Date: 20230113
  Serious: No
  Sender: FDA-Public Use
  Company Number: US-ABBVIE-4222985

PATIENT
  Sex: Male

DRUGS (1)
  1. IMBRUVICA [Suspect]
     Active Substance: IBRUTINIB
     Indication: Chronic lymphocytic leukaemia
     Route: 048
     Dates: start: 20220224

REACTIONS (5)
  - Gastric disorder [Unknown]
  - Oral mucosal blistering [Unknown]
  - Tongue blistering [Unknown]
  - Dyspnoea [Unknown]
  - Gout [Unknown]
